FAERS Safety Report 7723955-6 (Version None)
Quarter: 2011Q3

REPORT INFORMATION
  Report Type: 
  Country: None (occurrence: None)
  Receive Date: 20110901
  Receipt Date: 20110818
  Transmission Date: 20111222
  Serious: Yes (Hospitalization, Other)
  Sender: FDA-Public Use
  Company Number: US-ELI_LILLY_AND_COMPANY-US200909004531

PATIENT
  Age: 76 Year
  Sex: Female

DRUGS (9)
  1. EVISTA [Suspect]
     Dosage: UNK, UNKNOWN
     Route: 065
     Dates: end: 20090301
  2. CALCIUM CARBONATE [Concomitant]
  3. KEPPRA [Concomitant]
     Indication: CONVULSION PROPHYLAXIS
  4. VITAMIN B1 TAB [Concomitant]
  5. FOSAMAX [Concomitant]
     Indication: OSTEOPOROSIS
  6. FOLIC ACID [Concomitant]
  7. MULTI-VITAMIN [Concomitant]
  8. EVISTA [Suspect]
     Indication: OSTEOPOROSIS
     Dosage: UNK, UNKNOWN
     Route: 065
  9. PRILOSEC [Concomitant]

REACTIONS (4)
  - CEREBROVASCULAR ACCIDENT [None]
  - BREAST CANCER [None]
  - DIZZINESS [None]
  - HEADACHE [None]
